FAERS Safety Report 14162978 (Version 2)
Quarter: 2017Q4

REPORT INFORMATION
  Report Type: Spontaneous
  Country: CH (occurrence: CH)
  Receive Date: 20171106
  Receipt Date: 20171110
  Transmission Date: 20180321
  Serious: Yes (Hospitalization, Other)
  Sender: FDA-Public Use
  Company Number: CH-PFIZER INC-2017470539

PATIENT
  Age: 46 Year
  Sex: Female

DRUGS (4)
  1. BRUFEN /00109201/ [Suspect]
     Active Substance: IBUPROFEN
     Dosage: 400 MG, 3X/DAY
     Route: 048
     Dates: start: 20171004, end: 20171011
  2. AROMASIN [Suspect]
     Active Substance: EXEMESTANE
     Indication: BREAST CANCER
     Dosage: 25 MG, 1X/DAY
     Route: 048
     Dates: start: 20151103, end: 20171011
  3. DAFALGAN [Suspect]
     Active Substance: ACETAMINOPHEN
     Indication: PROCEDURAL PAIN
     Dosage: 1 G, 3X/DAY
     Route: 048
     Dates: start: 20171004, end: 20171009
  4. DAFALGAN [Suspect]
     Active Substance: ACETAMINOPHEN
     Dosage: 1 G, 2X/DAY
     Route: 048
     Dates: start: 20171010, end: 20171011

REACTIONS (5)
  - Vomiting [Recovered/Resolved]
  - Hepatocellular injury [Recovering/Resolving]
  - Nausea [Recovered/Resolved]
  - Decreased appetite [Recovered/Resolved]
  - Asthenia [Recovered/Resolved]

NARRATIVE: CASE EVENT DATE: 20171011
